FAERS Safety Report 6778860-9 (Version None)
Quarter: 2010Q2

REPORT INFORMATION
  Report Type: 
  Country: None (occurrence: None)
  Receive Date: 20100618
  Receipt Date: 20100607
  Transmission Date: 20101027
  Serious: Yes (Other)
  Sender: FDA-Public Use
  Company Number: CA-JNJFOC-20100602845

PATIENT
  Sex: Female
  Weight: 49 kg

DRUGS (2)
  1. REMICADE [Suspect]
     Indication: ANKYLOSING SPONDYLITIS
     Dosage: 6 INFUSIONS
     Route: 042
  2. REMICADE [Suspect]
     Dosage: 65 INFUSIONS
     Route: 042

REACTIONS (1)
  - LUNG NEOPLASM MALIGNANT [None]
